FAERS Safety Report 19518085 (Version 1)
Quarter: 2021Q3

REPORT INFORMATION
  Report Type: Spontaneous
  Country: US (occurrence: US)
  Receive Date: 20210712
  Receipt Date: 20210712
  Transmission Date: 20211014
  Serious: Yes (Hospitalization, Other)
  Sender: FDA-Public Use
  Company Number: US-HIKMA PHARMACEUTICALS USA INC.-US-H14001-21-03113

PATIENT
  Age: 14 Year
  Sex: Male
  Weight: 122.7 kg

DRUGS (9)
  1. METHOTREXATE. [Suspect]
     Active Substance: METHOTREXATE
     Dosage: DAY 21
     Route: 042
     Dates: start: 20201214
  2. METHOTREXATE. [Suspect]
     Active Substance: METHOTREXATE
     Dosage: DAY 10
     Route: 042
     Dates: start: 20201214
  3. METHOTREXATE. [Suspect]
     Active Substance: METHOTREXATE
     Dosage: DAY 11
     Route: 037
     Dates: start: 20201223
  4. INCB018424 [Suspect]
     Active Substance: RUXOLITINIB
     Dosage: DAYS 1?10, 21?25
     Route: 048
     Dates: start: 20201214, end: 20210108
  5. METHOTREXATE. [Suspect]
     Active Substance: METHOTREXATE
     Indication: ACUTE LYMPHOCYTIC LEUKAEMIA
     Dosage: DAY 1
     Route: 042
     Dates: start: 20201214
  6. ASPARAGINASE [Suspect]
     Active Substance: ASPARAGINASE
     Indication: ACUTE LYMPHOCYTIC LEUKAEMIA
     Dosage: DAYS 1, 3, 5, 8, 10, 12
     Route: 051
     Dates: start: 20201214
  7. INCB018424 [Suspect]
     Active Substance: RUXOLITINIB
     Indication: ACUTE LYMPHOCYTIC LEUKAEMIA
     Route: 048
     Dates: start: 20201214, end: 20210108
  8. LOVENOX [Concomitant]
     Active Substance: ENOXAPARIN SODIUM
     Indication: PRODUCT USED FOR UNKNOWN INDICATION
     Dosage: UNKNOWN
     Route: 065
  9. VINCRISTINE [Suspect]
     Active Substance: VINCRISTINE
     Indication: ACUTE LYMPHOCYTIC LEUKAEMIA
     Dosage: DAY 1, 11, 21
     Route: 042
     Dates: start: 20201214

REACTIONS (10)
  - Mucosal inflammation [Recovered/Resolved]
  - Blood creatinine increased [Recovered/Resolved]
  - Oral pain [Unknown]
  - Stomatitis [Unknown]
  - Proctalgia [Unknown]
  - Nausea [Unknown]
  - Proctitis [Unknown]
  - Dehydration [Recovered/Resolved]
  - Vomiting [Unknown]
  - Oropharyngeal pain [Unknown]

NARRATIVE: CASE EVENT DATE: 20210108
